FAERS Safety Report 4383698-6 (Version None)
Quarter: 2004Q2

REPORT INFORMATION
  Report Type: 
  Country: None (occurrence: None)
  Receive Date: 20040618
  Receipt Date: 20040607
  Transmission Date: 20050107
  Serious: Yes (Hospitalization)
  Sender: FDA-Public Use
  Company Number: M-04-183

PATIENT
  Sex: Female

DRUGS (8)
  1. PACERONE [Suspect]
     Indication: ATRIAL FIBRILLATION
     Dosage: 200 MG QID PO
     Route: 048
  2. CARTIA [Concomitant]
  3. AZMACORT [Concomitant]
  4. SYNTHROID [Concomitant]
  5. FLONASE [Concomitant]
  6. PREMARIN [Concomitant]
  7. VITAMIN C [Concomitant]
  8. MULTI-VITAMIN [Concomitant]

REACTIONS (5)
  - COORDINATION ABNORMAL [None]
  - FALL [None]
  - FATIGUE [None]
  - HEPATIC FUNCTION ABNORMAL [None]
  - MEMORY IMPAIRMENT [None]
